FAERS Safety Report 10077411 (Version 2)
Quarter: 2014Q2

REPORT INFORMATION
  Report Type: Spontaneous
  Country: US (occurrence: US)
  Receive Date: 20140414
  Receipt Date: 20140414
  Transmission Date: 20141212
  Serious: No
  Sender: FDA-Public Use
  Company Number: US-BANPHARM-20131486

PATIENT
  Age: 70 Year
  Sex: Female
  Weight: 68.04 kg

DRUGS (6)
  1. ALEVE LIQUID GELS 220 MG [Suspect]
     Indication: ARTHRALGIA
     Dosage: 1 DF, PRN,
     Route: 048
     Dates: start: 201305, end: 20130709
  2. BAYER ASPIRIN 81 MG [Concomitant]
  3. ATENOLOL [Concomitant]
  4. CLONADENE [Concomitant]
  5. ASTROVASTIN [Concomitant]
  6. BIOTIN [Concomitant]

REACTIONS (1)
  - Drug ineffective [Unknown]
